FAERS Safety Report 8534441-8 (Version None)
Quarter: 2012Q3

REPORT INFORMATION
  Report Type: 
  Country: None (occurrence: None)
  Receive Date: 20120712
  Receipt Date: 20120627
  Transmission Date: 20120928
  Serious: Yes (Hospitalization)
  Sender: FDA-Public Use
  Company Number: COL_11892_2012

PATIENT
  Sex: Female

DRUGS (3)
  1. CREST TOOTHPASTE [Suspect]
     Indication: PRODUCT USED FOR UNKNOWN INDICATION
     Dosage: (/ ORAL)
     Route: 048
     Dates: end: 20120501
  2. COLGATE BAKING SODA AND PEROXIDE WHITENING BRISK MINT TOOTHPASTE [Suspect]
     Indication: DENTAL CARIES
     Route: 048
     Dates: end: 20120501
  3. COLGATE BAKING SODA AND PEROXIDE WHITENING BRISK MINT TOOTHPASTE [Suspect]
     Indication: DENTAL CARIES
     Route: 048
     Dates: start: 20120626, end: 20120626

REACTIONS (3)
  - GINGIVAL BLEEDING [None]
  - CARDIAC FAILURE CONGESTIVE [None]
  - GINGIVAL SWELLING [None]
